FAERS Safety Report 11238107 (Version 2)
Quarter: 2017Q2

REPORT INFORMATION
  Report Type: Report from Study
  Country: US (occurrence: US)
  Receive Date: 20150703
  Receipt Date: 20170627
  Transmission Date: 20170829
  Serious: Yes (Other)
  Sender: FDA-Public Use
  Company Number: US-ASTRAZENECA-2015SE63635

PATIENT
  Age: 13107 Day
  Sex: Male
  Weight: 82.4 kg

DRUGS (6)
  1. INSULIN [Concomitant]
     Active Substance: INSULIN NOS
     Dosage: 35-48.6 UNITS
     Route: 058
     Dates: start: 1997
  2. LISINOPRIL. [Concomitant]
     Active Substance: LISINOPRIL
     Dosage: 10.0MG UNKNOWN
     Dates: start: 20070515
  3. HUMALOG [Concomitant]
     Active Substance: INSULIN LISPRO
     Dosage: 4.0IU UNKNOWN
     Route: 058
  4. MULTIVITAMIN [Concomitant]
     Active Substance: VITAMINS
     Dosage: 1.0DF UNKNOWN
     Route: 048
     Dates: start: 2009
  5. ZOFRAN [Concomitant]
     Active Substance: ONDANSETRON HYDROCHLORIDE
     Dosage: 8.0MG UNKNOWN
  6. DAPAGLIFLOZIN [Suspect]
     Active Substance: DAPAGLIFLOZIN
     Indication: TYPE 1 DIABETES MELLITUS
     Route: 048
     Dates: start: 20150223, end: 20151023

REACTIONS (1)
  - Diabetic ketoacidosis [Recovered/Resolved]

NARRATIVE: CASE EVENT DATE: 20150612
